FAERS Safety Report 19820463 (Version 2)
Quarter: 2025Q3

REPORT INFORMATION
  Report Type: Spontaneous
  Country: EU (occurrence: EU)
  Receive Date: 20210913
  Receipt Date: 20250708
  Transmission Date: 20251020
  Serious: Yes (Other)
  Sender: AUROBINDO
  Company Number: EU-SUN PHARMACEUTICAL INDUSTRIES LTD-2021RR-309774

PATIENT
  Age: 28 Year
  Sex: Male

DRUGS (6)
  1. ARIPIPRAZOLE [Suspect]
     Active Substance: ARIPIPRAZOLE
     Indication: Cerebral atrophy
     Dosage: 10 MILLIGRAM, ONCE A DAY(10 MILLIGRAM, DAILY)
     Route: 065
  2. VALPROATE SODIUM [Suspect]
     Active Substance: VALPROATE SODIUM
     Indication: Cerebral atrophy
     Route: 065
  3. LORAZEPAM [Suspect]
     Active Substance: LORAZEPAM
     Indication: Cerebral atrophy
     Dosage: 2 MILLIGRAM, ONCE A DAY(2 MILLIGRAM, DAILY)
     Route: 065
  4. QUETIAPINE [Suspect]
     Active Substance: QUETIAPINE
     Indication: Cerebral atrophy
     Dosage: 200 MILLIGRAM, ONCE A DAY(200 MILLIGRAM, DAILY)
     Route: 065
  5. CARIPRAZINE [Concomitant]
     Active Substance: CARIPRAZINE
     Indication: Product used for unknown indication
     Dosage: 3 MILLIGRAM, ONCE A DAY(3 MILLIGRAM, DAILY)
     Route: 065
  6. CARIPRAZINE [Concomitant]
     Active Substance: CARIPRAZINE
     Route: 065

REACTIONS (2)
  - Weight increased [Unknown]
  - Therapeutic response unexpected [Unknown]
